FAERS Safety Report 19211639 (Version 3)
Quarter: 2021Q3

REPORT INFORMATION
  Report Type: Report from Study
  Country: ES (occurrence: ES)
  Receive Date: 20210504
  Receipt Date: 20210825
  Transmission Date: 20211014
  Serious: Yes (Hospitalization)
  Sender: FDA-Public Use
  Company Number: ES-ROCHE-2803144

PATIENT
  Age: 60 Year
  Sex: Male
  Weight: 78.8 kg

DRUGS (24)
  1. BEVACIZUMAB. [Suspect]
     Active Substance: BEVACIZUMAB
     Indication: PANCREATIC CARCINOMA METASTATIC
     Dosage: ON 16/MAR/2021, HE RECEIVED MOST RECENT DOSE OF ALBUMIN BOUND PACLITAXEL (800 UNIT NOT REPORTED) PRI
     Route: 042
     Dates: start: 20201027
  2. PARACETAMOL [Concomitant]
     Active Substance: ACETAMINOPHEN
     Indication: PAIN
     Dates: start: 20210330
  3. METRONIDAZOLE. [Concomitant]
     Active Substance: METRONIDAZOLE
     Indication: BACTERIAL INFECTION
     Route: 048
     Dates: start: 20210326, end: 20210508
  4. DEXCHLORPHENIRAMINE [Concomitant]
     Active Substance: DEXCHLORPHENIRAMINE
     Indication: PREMEDICATION
     Dates: start: 20210302, end: 20210302
  5. ONDANSETRON [Concomitant]
     Active Substance: ONDANSETRON
     Indication: PREMEDICATION
     Dates: start: 20210302, end: 20210302
  6. FAMOTIDINE. [Concomitant]
     Active Substance: FAMOTIDINE
     Route: 048
     Dates: start: 20210330, end: 20210427
  7. HIBOR [Concomitant]
     Dates: start: 20210330
  8. ENALAPRIL [Concomitant]
     Active Substance: ENALAPRIL
     Indication: HYPERTENSION
     Dates: start: 20201110, end: 20210330
  9. ONDANSETRON [Concomitant]
     Active Substance: ONDANSETRON
     Dates: start: 20210316, end: 20210316
  10. ESCITALOPRAM [Concomitant]
     Active Substance: ESCITALOPRAM OXALATE
     Indication: INSOMNIA
     Dates: start: 20210316, end: 20210601
  11. KREON [Concomitant]
     Active Substance: PANCRELIPASE
     Indication: PANCREATIC FAILURE
     Dates: start: 20210316
  12. GEMCITABINE. [Suspect]
     Active Substance: GEMCITABINE
     Indication: PANCREATIC CARCINOMA METASTATIC
     Dosage: ON 16/MAR/2021, HE RECEIVED MOST RECENT DOSE OF GEMCITABINE (1528 MG) PRIOR TO ONSET OF SERIOUS ADVE
     Route: 042
     Dates: start: 20201027
  13. NAB?PACLITAXEL [Suspect]
     Active Substance: PACLITAXEL
     Indication: PANCREATIC CARCINOMA METASTATIC
     Dosage: ON 16/MAR/2021, HE RECEIVED MOST RECENT DOSE OF ALBUMIN BOUND PACLITAXEL (191 MG) PRIOR TO ONSET OF
     Route: 042
     Dates: start: 20201027
  14. FAMOTIDINE. [Concomitant]
     Active Substance: FAMOTIDINE
     Route: 048
     Dates: start: 20210407, end: 20210427
  15. RINOBANEDIF (SPAIN) [Concomitant]
     Indication: EPISTAXIS
     Dates: start: 20201217
  16. MEGESTROL ACETATE. [Concomitant]
     Active Substance: MEGESTROL ACETATE
     Indication: DECREASED APPETITE
     Dates: start: 20210302, end: 20210402
  17. ATEZOLIZUMAB. [Suspect]
     Active Substance: ATEZOLIZUMAB
     Indication: PANCREATIC CARCINOMA METASTATIC
     Dosage: ON 16/MAR/2021, HE RECEIVED MOST RECENT DOSE OF ATEZOLIZUMAB (840 MG) PRIOR TO ONSET OF SERIOUS ADVE
     Route: 042
     Dates: start: 20201027
  18. DEXCHLORPHENIRAMINE [Concomitant]
     Active Substance: DEXCHLORPHENIRAMINE
     Dates: start: 20210316, end: 20210316
  19. LACTULOSE. [Concomitant]
     Active Substance: LACTULOSE
     Indication: CONSTIPATION
     Dates: start: 20210316, end: 20210402
  20. MOTILIUM [Concomitant]
     Active Substance: DOMPERIDONE
     Indication: VOMITING
     Dates: start: 20210316
  21. AMLODIPINE [Concomitant]
     Active Substance: AMLODIPINE BESYLATE
     Indication: HYPERTENSION
     Dates: start: 20210405, end: 20210428
  22. MIRTAZAPINA [Concomitant]
     Active Substance: MIRTAZAPINE
     Dates: start: 20210202, end: 20210316
  23. OMEPRAZOL [Concomitant]
     Active Substance: OMEPRAZOLE
  24. IBUPROFENO [Concomitant]
     Active Substance: IBUPROFEN
     Indication: PAIN
     Dates: start: 20201016

REACTIONS (1)
  - Acute kidney injury [Recovered/Resolved]

NARRATIVE: CASE EVENT DATE: 20210330
